FAERS Safety Report 8101497-6 (Version None)
Quarter: 2012Q1

REPORT INFORMATION
  Report Type: 
  Country: None (occurrence: None)
  Receive Date: 20120129
  Receipt Date: 20111011
  Transmission Date: 20120608
  Serious: No
  Sender: FDA-Public Use
  Company Number: US-ABBOTT-11P-163-0863158-00

PATIENT
  Age: 38 Year
  Sex: Female

DRUGS (13)
  1. HUMIRA [Suspect]
     Indication: SERONEGATIVE ARTHRITIS
  2. CYMBALTA [Concomitant]
     Indication: FIBROMYALGIA
  3. FLONASE [Concomitant]
     Indication: SEASONAL ALLERGY
     Dosage: 2 SPRAYS EACH NARE DAILY
  4. LISINOPRIL AND HYDROCHLOROTHIAZIDE [Concomitant]
     Indication: HYPERTENSION
     Dosage: 15/12.5
  5. MULTI-VITAMINS [Concomitant]
     Indication: PRODUCT USED FOR UNKNOWN INDICATION
  6. AMBIEN [Concomitant]
     Indication: INSOMNIA
  7. MOBIC [Concomitant]
     Indication: ARTHRITIS
  8. ACETAMINOPHEN [Concomitant]
     Indication: PRODUCT USED FOR UNKNOWN INDICATION
  9. VICODIN [Concomitant]
     Indication: PAIN
     Dosage: 7.5/500
  10. LEFLUNOMIDE [Concomitant]
     Indication: ARTHRITIS
  11. TRAMADOL HCL [Concomitant]
     Indication: PAIN
     Dosage: 1-2 TABLETS
  12. ZYRTEC [Concomitant]
     Indication: SEASONAL ALLERGY
  13. VITAMIN D [Concomitant]
     Indication: VITAMIN D DEFICIENCY

REACTIONS (2)
  - RASH PAPULAR [None]
  - INJECTION SITE ERYTHEMA [None]
